FAERS Safety Report 7742213-7 (Version None)
Quarter: 2011Q3

REPORT INFORMATION
  Report Type: 
  Country: None (occurrence: None)
  Receive Date: 20110912
  Receipt Date: 20110816
  Transmission Date: 20111222
  Serious: No
  Sender: FDA-Public Use
  Company Number: US-BAYER-2011-073666

PATIENT
  Age: 36 Year
  Sex: Female

DRUGS (3)
  1. BETASERON [Suspect]
     Indication: MULTIPLE SCLEROSIS
     Dosage: 3 MG, QOD
     Route: 058
  2. GABAPENTIN [Concomitant]
  3. PROMETHAZINE [Concomitant]

REACTIONS (6)
  - DIZZINESS [None]
  - CONSTIPATION [None]
  - ASTHENIA [None]
  - HAEMORRHOIDS [None]
  - BLADDER DISORDER [None]
  - DYSPNOEA [None]
